FAERS Safety Report 4868909-2 (Version None)
Quarter: 2005Q4

REPORT INFORMATION
  Report Type: 
  Country: None (occurrence: None)
  Receive Date: 20051229
  Receipt Date: 20051004
  Transmission Date: 20060501
  Serious: Yes (Hospitalization, Other)
  Sender: FDA-Public Use
  Company Number: US-MERCK-0510USA03705

PATIENT
  Age: 72 Year
  Sex: Male
  Weight: 83 kg

DRUGS (15)
  1. TRIMOX [Concomitant]
     Indication: INFECTION
     Route: 065
     Dates: start: 20010601
  2. VIAGRA [Concomitant]
     Indication: SEXUAL DYSFUNCTION
     Route: 065
  3. ZANTAC [Concomitant]
     Indication: GASTROOESOPHAGEAL REFLUX DISEASE
     Route: 065
  4. ZOCOR [Concomitant]
     Indication: BLOOD CHOLESTEROL INCREASED
     Route: 065
     Dates: start: 20040408
  5. HYDROCODONE BITARTRATE [Concomitant]
     Indication: PAIN
     Route: 065
  6. IRBESARTAN [Concomitant]
     Indication: HYPERTENSION
     Route: 065
     Dates: start: 20040408, end: 20050301
  7. NEXIUM [Concomitant]
     Indication: GASTROOESOPHAGEAL REFLUX DISEASE
     Route: 065
  8. VIOXX [Suspect]
     Indication: BACK PAIN
     Route: 048
     Dates: start: 20010315, end: 20040901
  9. VIOXX [Suspect]
     Route: 048
     Dates: start: 20010315, end: 20040901
  10. ACIPHEX [Concomitant]
     Indication: GASTROOESOPHAGEAL REFLUX DISEASE
     Route: 065
  11. ALPRAZOLAM [Concomitant]
     Indication: ANXIETY
     Route: 065
     Dates: start: 20040901
  12. AMITRIPTYLINE HYDROCHLORIDE [Concomitant]
     Indication: DEPRESSION
     Route: 065
  13. AUGMENTIN '125' [Concomitant]
     Indication: SINUSITIS
     Route: 065
  14. FAMOTIDINE [Concomitant]
     Indication: GASTROOESOPHAGEAL REFLUX DISEASE
     Route: 065
  15. PROTONIX [Concomitant]
     Indication: GASTROOESOPHAGEAL REFLUX DISEASE
     Route: 065

REACTIONS (17)
  - BACK DISORDER [None]
  - BLOOD CHOLESTEROL INCREASED [None]
  - CEREBRAL INFARCTION [None]
  - CONTUSION [None]
  - DEPRESSION [None]
  - FALL [None]
  - GASTROOESOPHAGEAL REFLUX DISEASE [None]
  - HEADACHE [None]
  - HYPERLIPIDAEMIA [None]
  - HYPERTENSION [None]
  - HYPOAESTHESIA [None]
  - INFECTION [None]
  - PAIN [None]
  - RETINAL VEIN OCCLUSION [None]
  - SINUSITIS [None]
  - TRANSIENT ISCHAEMIC ATTACK [None]
  - WRONG TECHNIQUE IN DRUG USAGE PROCESS [None]
